FAERS Safety Report 25650454 (Version 2)
Quarter: 2025Q3

REPORT INFORMATION
  Report Type: Spontaneous
  Country: JP (occurrence: JP)
  Receive Date: 20250806
  Receipt Date: 20250822
  Transmission Date: 20251020
  Serious: Yes (Other)
  Sender: ALEXION PHARMACEUTICALS
  Company Number: JP-ASTRAZENECA-202507JPN020267JP

PATIENT
  Age: 85 Year
  Sex: Female

DRUGS (8)
  1. DAPAGLIFLOZIN [Suspect]
     Active Substance: DAPAGLIFLOZIN
     Indication: Cardiac failure chronic
  2. TIZANIDINE [Concomitant]
     Active Substance: TIZANIDINE
  3. ASPARTIC ACID [Concomitant]
     Active Substance: ASPARTIC ACID
     Route: 065
  4. FAMOTIDINE [Concomitant]
     Active Substance: FAMOTIDINE
     Route: 065
  5. ALDACTONE [Concomitant]
     Active Substance: SPIRONOLACTONE
     Route: 065
  6. FUROSEMIDE [Concomitant]
     Active Substance: FUROSEMIDE
     Route: 065
  7. MAGNESIUM OXIDE [Concomitant]
     Active Substance: MAGNESIUM OXIDE
     Route: 065
  8. SHAKUYAKUKANZOTO [Concomitant]
     Active Substance: HERBALS
     Route: 065

REACTIONS (9)
  - Micturition disorder [Unknown]
  - Feeling abnormal [Unknown]
  - Pubic pain [Unknown]
  - Protein urine present [Unknown]
  - Glucose urine present [Unknown]
  - Urinary occult blood positive [Unknown]
  - Dysuria [Unknown]
  - Vulvovaginal discomfort [Unknown]
  - Urinary retention [Unknown]

NARRATIVE: CASE EVENT DATE: 20241001
